FAERS Safety Report 20205444 (Version 1)
Quarter: 2021Q4

REPORT INFORMATION
  Report Type: Report from Study
  Country: US (occurrence: US)
  Receive Date: 20211220
  Receipt Date: 20211220
  Transmission Date: 20220303
  Serious: Yes (Hospitalization, Other)
  Sender: FDA-Public Use
  Company Number: US-BRISTOL-MYERS SQUIBB COMPANY-BMS-2021-138256

PATIENT
  Age: 60 Year
  Sex: Male
  Weight: 47.2 kg

DRUGS (2)
  1. NIVOLUMAB [Suspect]
     Active Substance: NIVOLUMAB
     Indication: Oesophageal adenocarcinoma
     Dosage: UNK, Q2WK
     Route: 042
     Dates: start: 20210517
  2. RUCAPARIB [Suspect]
     Active Substance: RUCAPARIB
     Indication: Oesophageal adenocarcinoma
     Dosage: UNK UNK, BID
     Route: 048
     Dates: start: 20210517

REACTIONS (2)
  - Fatigue [Unknown]
  - Failure to thrive [Unknown]

NARRATIVE: CASE EVENT DATE: 20211213
